FAERS Safety Report 5453872-6 (Version None)
Quarter: 2007Q3

REPORT INFORMATION
  Report Type: 
  Country: None (occurrence: None)
  Receive Date: 20070917
  Receipt Date: 20070912
  Transmission Date: 20080115
  Serious: Yes (Other)
  Sender: FDA-Public Use
  Company Number: B0486668A

PATIENT
  Sex: Female

DRUGS (2)
  1. PAXIL [Suspect]
     Indication: DRUG USE FOR UNKNOWN INDICATION
     Dosage: 20MG PER DAY
     Route: 048
     Dates: start: 20070827
  2. ALPRAZOLAM [Concomitant]
     Dosage: .4MG PER DAY
     Route: 048
     Dates: start: 20070827

REACTIONS (2)
  - CONVULSION [None]
  - FALL [None]
